FAERS Safety Report 25686956 (Version 3)
Quarter: 2025Q3

REPORT INFORMATION
  Report Type: Spontaneous
  Country: US (occurrence: US)
  Receive Date: 20250816
  Receipt Date: 20250825
  Transmission Date: 20251020
  Serious: Yes (Hospitalization)
  Sender: RADIUS PHARM
  Company Number: US-RADIUS HEALTH INC.-US-RADIUS-25052271

PATIENT
  Age: 69 Year
  Sex: Female

DRUGS (4)
  1. TYMLOS [Suspect]
     Active Substance: ABALOPARATIDE
     Indication: Osteoporosis
     Dosage: 80 MICROGRAM, QD
     Route: 058
     Dates: start: 20250727, end: 20250801
  2. TYMLOS [Suspect]
     Active Substance: ABALOPARATIDE
     Indication: Type V hyperlipidaemia
  3. METFORMIN [Concomitant]
     Active Substance: METFORMIN HYDROCHLORIDE
     Indication: Product used for unknown indication
     Route: 065
  4. PRAVASTATIN [Concomitant]
     Active Substance: PRAVASTATIN
     Indication: Product used for unknown indication
     Route: 065

REACTIONS (8)
  - Cognitive disorder [Recovered/Resolved]
  - Blood pressure decreased [Recovered/Resolved]
  - Confusional state [Unknown]
  - Pseudostroke [Unknown]
  - Abdominal discomfort [Not Recovered/Not Resolved]
  - Dizziness [Unknown]
  - Heart rate increased [Unknown]
  - Off label use [Unknown]

NARRATIVE: CASE EVENT DATE: 20250727
